FAERS Safety Report 26008952 (Version 1)
Quarter: 2025Q4

REPORT INFORMATION
  Report Type: Spontaneous
  Country: US (occurrence: US)
  Receive Date: 20251106
  Receipt Date: 20251106
  Transmission Date: 20260119
  Serious: No
  Sender: SANOFI AVENTIS
  Company Number: US-SA-2025SA325515

PATIENT
  Age: 18 Year
  Sex: Male

DRUGS (2)
  1. RILZABRUTINIB [Suspect]
     Active Substance: RILZABRUTINIB
     Indication: Immune thrombocytopenia
     Dosage: 400 MG, BID
     Route: 048
     Dates: start: 20250911
  2. RILZABRUTINIB [Suspect]
     Active Substance: RILZABRUTINIB
     Dosage: 400 MG, QD
     Route: 048
     Dates: start: 2025

REACTIONS (2)
  - Diarrhoea [Not Recovered/Not Resolved]
  - Inappropriate schedule of product administration [Unknown]

NARRATIVE: CASE EVENT DATE: 20250920
